FAERS Safety Report 5328163-4 (Version None)
Quarter: 2007Q2

REPORT INFORMATION
  Report Type: 
  Country: None (occurrence: None)
  Receive Date: 20070514
  Receipt Date: 20070430
  Transmission Date: 20071010
  Serious: Yes (Hospitalization)
  Sender: FDA-Public Use
  Company Number: FSC_00110_2007

PATIENT
  Sex: Female

DRUGS (4)
  1. ISOPTIN [Suspect]
     Dosage: 80  MG 15X ORAL
     Route: 048
     Dates: start: 20070429, end: 20070429
  2. ISOPTIN [Suspect]
  3. CODEINE (CODEINE) 50 MG [Suspect]
     Dosage: 5O MG 20X ORAL
     Route: 048
     Dates: start: 20070429, end: 20070429
  4. DICLOFENAC (DICLOFENAC ) 75 MG [Suspect]
     Dosage: 75 MG 30X ORAL
     Route: 048
     Dates: start: 20070429, end: 20070429

REACTIONS (2)
  - MULTIPLE DRUG OVERDOSE INTENTIONAL [None]
  - SUICIDE ATTEMPT [None]
